FAERS Safety Report 22633199 (Version 1)
Quarter: 2023Q2

REPORT INFORMATION
  Report Type: Spontaneous
  Country: BR (occurrence: BR)
  Receive Date: 20230623
  Receipt Date: 20230623
  Transmission Date: 20230721
  Serious: Yes (Other)
  Sender: FDA-Public Use
  Company Number: BR-BoehringerIngelheim-2023-BI-241707

PATIENT
  Age: 32 Year
  Sex: Female
  Weight: 110 kg

DRUGS (14)
  1. FENOTEROL HYDROBROMIDE\IPRATROPIUM BROMIDE [Suspect]
     Active Substance: FENOTEROL HYDROBROMIDE\IPRATROPIUM BROMIDE
     Indication: Asthma
     Dosage: USED ABOUT 2 TO 3 TIMES DAILY
     Dates: start: 2016, end: 202306
  2. FENOTEROL HYDROBROMIDE\IPRATROPIUM BROMIDE [Suspect]
     Active Substance: FENOTEROL HYDROBROMIDE\IPRATROPIUM BROMIDE
     Indication: Asthmatic crisis
  3. ATROVENT [Suspect]
     Active Substance: IPRATROPIUM BROMIDE
     Indication: Asthma
     Dosage: DROPS, 10 DROPS FOR EACH NEBULIZATION AND USED A MAXIMUM OF 2 NEBULIZATION DAILY.
     Route: 055
  4. BEROTEC [Suspect]
     Active Substance: FENOTEROL HYDROBROMIDE
     Indication: Asthma
     Dosage: AEROSOL, USED ABOUT 3 OR 4 TIMES WEEKLY, ONLY AS A RESCUE MEDICATION
     Dates: start: 2012, end: 2015
  5. BEROTEC [Suspect]
     Active Substance: FENOTEROL HYDROBROMIDE
     Dosage: DROPS, 5 DROPS PER NEBULIZATION, SHE USED A MAXIMUM OF 2 NEBULIZATION A DAY.
     Route: 055
     Dates: start: 2017, end: 2017
  6. FLUTICASONE FUROATE\VILANTEROL TRIFENATATE [Suspect]
     Active Substance: FLUTICASONE FUROATE\VILANTEROL TRIFENATATE
     Indication: Asthma prophylaxis
     Dosage: ONCE DAILY AT NIGHT
     Route: 055
     Dates: start: 2017
  7. FLUTICASONE FUROATE\VILANTEROL TRIFENATATE [Suspect]
     Active Substance: FLUTICASONE FUROATE\VILANTEROL TRIFENATATE
     Indication: Asthma
  8. BECLOMETHASONE DIPROPIONATE [Suspect]
     Active Substance: BECLOMETHASONE DIPROPIONATE
     Indication: Asthma
     Dosage: AEROSOL, USED ABOUT 3 TIMES.
     Route: 055
     Dates: start: 2021
  9. ALBUTEROL [Concomitant]
     Active Substance: ALBUTEROL
     Indication: Asthma
     Dosage: AEROSOL
     Route: 055
  10. ALBUTEROL [Concomitant]
     Active Substance: ALBUTEROL
     Dosage: DROPS, NEBULIZATION, USED SPORADICALLY, ABOUT 2 TIMES DAILY WHEN NEEDED.
     Route: 055
     Dates: start: 2014, end: 201503
  11. SERETIDE [Concomitant]
     Active Substance: FLUTICASONE PROPIONATE\SALMETEROL XINAFOATE
     Indication: Asthma
     Dosage: IT WOULD BE AN INHALER WITH POWDER, SHE USED ONCE ONLY AT NIGHT.
     Route: 055
     Dates: start: 201205, end: 201708
  12. LORATADINE [Concomitant]
     Active Substance: LORATADINE
     Indication: Cough
     Dosage: SPORADIC USE
     Route: 048
  13. LORATADINE [Concomitant]
     Active Substance: LORATADINE
     Indication: Fatigue
  14. Alenia [Concomitant]
     Indication: Product used for unknown indication

REACTIONS (10)
  - Drug dependence [Unknown]
  - Tachycardia [Unknown]
  - COVID-19 [Unknown]
  - COVID-19 [Unknown]
  - Adenomyosis [Unknown]
  - COVID-19 [Unknown]
  - Fear [Unknown]
  - Fatigue [Unknown]
  - Drug ineffective [Unknown]
  - Arthralgia [Unknown]

NARRATIVE: CASE EVENT DATE: 20170101
